FAERS Safety Report 12829817 (Version 1)
Quarter: 2016Q4

REPORT INFORMATION
  Report Type: Spontaneous
  Country: US (occurrence: US)
  Receive Date: 20161007
  Receipt Date: 20161007
  Transmission Date: 20170207
  Serious: No
  Sender: FDA-Public Use
  Company Number: US-SA-2016SA117205

PATIENT
  Sex: Female

DRUGS (24)
  1. AUBAGIO [Suspect]
     Active Substance: TERIFLUNOMIDE
     Indication: MULTIPLE SCLEROSIS
     Route: 048
  2. ALEVE [Concomitant]
     Active Substance: NAPROXEN SODIUM
  3. LASIX [Concomitant]
     Active Substance: FUROSEMIDE
  4. AUBAGIO [Suspect]
     Active Substance: TERIFLUNOMIDE
     Indication: MULTIPLE SCLEROSIS
     Route: 048
  5. BACLOFEN. [Concomitant]
     Active Substance: BACLOFEN
  6. WOMENS MULTI [Concomitant]
  7. MELATONIN [Concomitant]
     Active Substance: MELATONIN
  8. IRON [Concomitant]
     Active Substance: IRON
  9. REXULTI [Concomitant]
     Active Substance: BREXPIPRAZOLE
  10. KERA TEK [Concomitant]
  11. SEROQUEL [Concomitant]
     Active Substance: QUETIAPINE FUMARATE
  12. FLUOXETINE HYDROCHLORIDE. [Concomitant]
     Active Substance: FLUOXETINE HYDROCHLORIDE
  13. VITAMIN B12 [Concomitant]
     Active Substance: CYANOCOBALAMIN
  14. CYMBALTA [Concomitant]
     Active Substance: DULOXETINE HYDROCHLORIDE
  15. LOSARTAN POTASSIUM. [Concomitant]
     Active Substance: LOSARTAN POTASSIUM
  16. KLONOPIN [Concomitant]
     Active Substance: CLONAZEPAM
  17. KLOR-CON [Concomitant]
     Active Substance: POTASSIUM CHLORIDE
     Dosage: M10
  18. GABAPENTIN. [Concomitant]
     Active Substance: GABAPENTIN
  19. REBIF [Concomitant]
     Active Substance: INTERFERON BETA-1A
  20. TRAMADOL HYDROCHLORIDE. [Concomitant]
     Active Substance: TRAMADOL HYDROCHLORIDE
  21. BIOTIN [Concomitant]
     Active Substance: BIOTIN
  22. HYDROCHLOROTHIAZIDE WITH TRIAMTERENE [Concomitant]
     Active Substance: HYDROCHLOROTHIAZIDE\TRIAMTERENE
  23. DEPO-PROVERA [Concomitant]
     Active Substance: MEDROXYPROGESTERONE ACETATE
  24. EXCEDRIN [Concomitant]
     Active Substance: ACETAMINOPHEN\ASPIRIN\CAFFEINE
     Indication: MIGRAINE

REACTIONS (6)
  - Alopecia [Unknown]
  - Drug dose omission [Unknown]
  - Arthralgia [Unknown]
  - Condition aggravated [Unknown]
  - Cognitive disorder [Unknown]
  - Muscle spasms [Unknown]
